FAERS Safety Report 8159634-3 (Version None)
Quarter: 2012Q1

REPORT INFORMATION
  Report Type: 
  Country: None (occurrence: None)
  Receive Date: 20120223
  Receipt Date: 20120215
  Transmission Date: 20120608
  Serious: Yes (Hospitalization)
  Sender: FDA-Public Use
  Company Number: US-UCBSA-030969

PATIENT
  Age: 23 Year
  Sex: Male
  Weight: 47.62 kg

DRUGS (16)
  1. TRAZODONE HCL [Concomitant]
  2. MERCAPTOPURINE [Concomitant]
     Dosage: DAILY
  3. PERCOCET [Concomitant]
     Indication: PAIN
     Dosage: 5/325MG 1-2 TABLETS; Q4H
     Route: 048
  4. CERTOLIZUMAB PEGOL [Suspect]
     Route: 058
     Dates: start: 20110121
  5. LEVAQUIN [Concomitant]
     Route: 048
  6. CERTOLIZUMAB PEGOL [Suspect]
     Route: 058
     Dates: start: 20110114
  7. CERTOLIZUMAB PEGOL [Suspect]
     Indication: CROHN'S DISEASE
     Route: 058
     Dates: start: 20100326
  8. CERTOLIZUMAB PEGOL [Suspect]
     Route: 058
     Dates: start: 20110405
  9. ASCORBIC ACID [Concomitant]
  10. MERCAPTOPURINE [Concomitant]
     Dosage: DAILY
     Route: 048
     Dates: start: 20100401
  11. CLONAZEPAM [Concomitant]
     Route: 048
  12. PREDNISONE TAB [Concomitant]
     Indication: CROHN'S DISEASE
     Dosage: DAILY; 5MG 2 TABLETS DAILY X 4 DAYS, THEN 1 TABLET UNTIL SEEN BY DOCTOR
     Dates: start: 20091001, end: 20110221
  13. PREDNISONE TAB [Concomitant]
     Dosage: 10MG DAILY FOR 1 WEEK FROM 08/FEB/2011AND TO DECREASE THAT BY 2.5MG DAILY EVERY WEEK UNTIL HE IS OFF
     Dates: start: 20110208
  14. VITAMIN D [Concomitant]
  15. CERTOLIZUMAB PEGOL [Suspect]
     Route: 058
     Dates: start: 20100629, end: 20101213
  16. CERTOLIZUMAB PEGOL [Suspect]
     Route: 058
     Dates: start: 20110225

REACTIONS (1)
  - PNEUMONIA [None]
